FAERS Safety Report 9703333 (Version 2)
Quarter: 2014Q1

REPORT INFORMATION
  Report Type: Spontaneous
  Country: US (occurrence: US)
  Receive Date: 20131122
  Receipt Date: 20140116
  Transmission Date: 20141002
  Serious: Yes (Hospitalization, Other)
  Sender: FDA-Public Use
  Company Number: US-AMGEN-USASP2013081226

PATIENT
  Age: 71 Year
  Sex: Female
  Weight: 88.89 kg

DRUGS (14)
  1. PROLIA [Suspect]
     Indication: OSTEOPOROSIS
     Dosage: 60 MG, Q6MO
     Route: 058
     Dates: start: 20120113, end: 20120713
  2. PROLIA [Suspect]
     Route: 065
  3. MYCOPHENOLATE [Suspect]
     Indication: PRODUCT USED FOR UNKNOWN INDICATION
     Route: 065
  4. PREDNISONE [Suspect]
     Indication: PRODUCT USED FOR UNKNOWN INDICATION
     Dosage: 5 MG, UNK
     Route: 065
  5. TACROLIMUS [Suspect]
     Indication: PRODUCT USED FOR UNKNOWN INDICATION
     Route: 065
  6. INSULIN [Concomitant]
  7. ROSUVASTATIN [Concomitant]
  8. FAMOTIDINE [Concomitant]
  9. AMLODIPINE [Concomitant]
  10. CARVEDILOL [Concomitant]
  11. CETIRIZINE [Concomitant]
  12. EPOETIN ALFA [Concomitant]
  13. FUROSEMIDE [Concomitant]
  14. GABAPENTIN [Concomitant]

REACTIONS (4)
  - Hydronephrosis [Unknown]
  - Sepsis [Unknown]
  - Urinary tract infection bacterial [Unknown]
  - Urinary tract infection fungal [Unknown]
